FAERS Safety Report 10111114 (Version 1)
Quarter: 2014Q2

REPORT INFORMATION
  Report Type: Spontaneous
  Country: US (occurrence: None)
  Receive Date: 20140421
  Receipt Date: 20140421
  Transmission Date: 20141212
  Serious: No
  Sender: FDA-Public Use
  Company Number: AEGR000256

PATIENT
  Age: 68 Year
  Sex: Male
  Weight: 98 kg

DRUGS (8)
  1. JUXTAPID (LOMITAPIDE) CAPSULE, 10 MG [Suspect]
     Indication: TYPE IIA HYPERLIPIDAEMIA
     Route: 048
     Dates: start: 201308
  2. ASA (ACETYLSALICYLIC ACID) [Concomitant]
  3. XANAX (ALPRAZOLAM) [Concomitant]
  4. CRESTOR (ROSUVASTATIN CALCIUM) [Concomitant]
  5. ZETIA (EZETIMIBE) [Concomitant]
  6. PLAVIX (CLOPIDOGREL BISULFATE) [Concomitant]
  7. METOPROLOL (METOPROLOL TARTRATE) [Concomitant]
  8. ISOSORBIDE MONONITRATE (ISOSORBIDE MONONITRATE) [Concomitant]

REACTIONS (1)
  - Cough [None]
